FAERS Safety Report 6539622-0 (Version None)
Quarter: 2010Q1

REPORT INFORMATION
  Report Type: 
  Country: None (occurrence: None)
  Receive Date: 20100115
  Receipt Date: 20100114
  Transmission Date: 20100710
  Serious: Yes (Hospitalization)
  Sender: FDA-Public Use
  Company Number: US-B.I. PHARMACEUTICALS,INC./RIDGEFIELD-2009-BP-14980BP

PATIENT
  Sex: Male

DRUGS (7)
  1. SPIRIVA [Suspect]
     Indication: CHRONIC OBSTRUCTIVE PULMONARY DISEASE
     Dosage: 18 MCG
  2. SPIRIVA [Suspect]
     Indication: BRONCHITIS
  3. ALLOPURINOL [Concomitant]
     Dosage: 300 MG
  4. PREVACID [Concomitant]
  5. FLOMAX [Concomitant]
     Dosage: 0.4 MG
  6. TRICOR [Concomitant]
     Dosage: 145 MG
  7. DARVOCET [Concomitant]

REACTIONS (2)
  - BRONCHITIS [None]
  - CHRONIC OBSTRUCTIVE PULMONARY DISEASE [None]
